FAERS Safety Report 5795436-0 (Version None)
Quarter: 2008Q2

REPORT INFORMATION
  Report Type: 
  Country: None (occurrence: None)
  Receive Date: 20080630
  Receipt Date: 20080620
  Transmission Date: 20081010
  Serious: Yes (Death, Life-Threatening)
  Sender: FDA-Public Use
  Company Number: US-PFIZER INC-2007069817

PATIENT
  Sex: Male
  Weight: 85 kg

DRUGS (12)
  1. SUTENT [Suspect]
     Indication: PROSTATE CANCER METASTATIC
     Route: 048
     Dates: start: 20070517, end: 20070816
  2. TAXOTERE [Suspect]
     Indication: PROSTATE CANCER METASTATIC
     Route: 042
     Dates: start: 20070517, end: 20070809
  3. CALCIUM WITH VITAMIN D [Concomitant]
     Route: 048
  4. CELEBREX [Concomitant]
     Route: 048
  5. VICODIN [Concomitant]
     Dosage: TEXT:5/500 MG-FREQ:PRN Q6HRS
     Route: 048
  6. LEXAPRO [Concomitant]
     Route: 048
  7. LIPITOR [Concomitant]
     Route: 048
  8. LUPRON [Concomitant]
     Route: 030
  9. NEXIUM [Concomitant]
     Route: 048
  10. OMEGA 3 [Concomitant]
     Dosage: TEXT:1 CAPSULE-FREQ:QD
     Route: 048
  11. PREDNISONE [Concomitant]
     Route: 048
  12. ZOMETA [Concomitant]
     Route: 042

REACTIONS (3)
  - MULTI-ORGAN FAILURE [None]
  - NEUTROPENIA [None]
  - SEPSIS [None]
